FAERS Safety Report 16547585 (Version 1)
Quarter: 2019Q3

REPORT INFORMATION
  Report Type: Spontaneous
  Country: DE (occurrence: DE)
  Receive Date: 20190709
  Receipt Date: 20190709
  Transmission Date: 20191004
  Serious: Yes (Hospitalization)
  Sender: FDA-Public Use
  Company Number: PHHY2019DE153833

PATIENT
  Age: 31 Year
  Sex: Female

DRUGS (2)
  1. RISPERIDON ? 1 A PHARMA [Suspect]
     Active Substance: RISPERIDONE
     Dosage: 1 MG, BID
     Route: 065
     Dates: start: 20190627
  2. RISPERIDON ? 1 A PHARMA [Suspect]
     Active Substance: RISPERIDONE
     Indication: SCHIZOPHRENIA
     Dosage: UNK
     Route: 065
     Dates: end: 20190619

REACTIONS (3)
  - Dysphonia [Unknown]
  - Feeling abnormal [Unknown]
  - Behaviour disorder [Not Recovered/Not Resolved]

NARRATIVE: CASE EVENT DATE: 201906
